FAERS Safety Report 22332675 (Version 1)
Quarter: 2023Q2

REPORT INFORMATION
  Report Type: Spontaneous
  Country: US (occurrence: US)
  Receive Date: 20230517
  Receipt Date: 20230517
  Transmission Date: 20230721
  Serious: Yes (Hospitalization)
  Sender: FDA-Public Use
  Company Number: US-MYLANLABS-2023M1050855

PATIENT
  Age: 57 Year
  Sex: Female

DRUGS (2)
  1. CISPLATIN [Suspect]
     Active Substance: CISPLATIN
     Indication: Small cell carcinoma
     Dosage: 80 MILLIGRAM/SQ. METER, ON DAY 1
     Route: 065
  2. ETOPOSIDE [Concomitant]
     Active Substance: ETOPOSIDE
     Indication: Small cell carcinoma
     Dosage: 100 MILLIGRAM/SQ. METER, QD, ON DAY 1, 2, AND 3
     Route: 065

REACTIONS (2)
  - Renal salt-wasting syndrome [Recovering/Resolving]
  - Fanconi syndrome acquired [Unknown]
